FAERS Safety Report 13756195 (Version 1)
Quarter: 2017Q3

REPORT INFORMATION
  Report Type: Report from Study
  Country: US (occurrence: US)
  Receive Date: 20170714
  Receipt Date: 20170714
  Transmission Date: 20171127
  Serious: Yes (Other)
  Sender: FDA-Public Use
  Company Number: US-GILEAD-2017-0277270

PATIENT
  Age: 74 Year
  Sex: Male

DRUGS (3)
  1. AMBRISENTAN [Suspect]
     Active Substance: AMBRISENTAN
     Indication: RHEUMATOID ARTHRITIS
  2. AMBRISENTAN [Suspect]
     Active Substance: AMBRISENTAN
     Indication: EMPHYSEMA
  3. AMBRISENTAN [Suspect]
     Active Substance: AMBRISENTAN
     Indication: PULMONARY HYPERTENSION
     Dosage: 5 MG, UNK
     Route: 065
     Dates: start: 20141014

REACTIONS (3)
  - Dementia [Not Recovered/Not Resolved]
  - Asthenia [Unknown]
  - Amnesia [Not Recovered/Not Resolved]
